FAERS Safety Report 17983771 (Version 1)
Quarter: 2020Q3

REPORT INFORMATION
  Report Type: Spontaneous
  Country: US (occurrence: US)
  Receive Date: 20200705
  Receipt Date: 20200705
  Transmission Date: 20201103
  Serious: Yes (Other)
  Sender: FDA-Public Use
  Company Number: None

PATIENT
  Age: 46 Year
  Sex: Female
  Weight: 138.3 kg

DRUGS (3)
  1. HIZENTRA [Suspect]
     Active Substance: HUMAN IMMUNOGLOBULIN G
     Indication: STIFF PERSON SYNDROME
     Dosage: ?          OTHER FREQUENCY:TWICE WEEKLY;?
     Route: 058
     Dates: start: 20200622
  2. HIZENTRA [Suspect]
     Active Substance: HUMAN IMMUNOGLOBULIN G
     Indication: STIFF PERSON SYNDROME
     Dosage: ?          OTHER FREQUENCY:TWICE WEEKLY;?
     Route: 058
     Dates: start: 20200622
  3. HIZENTRA 1GM [Concomitant]
     Dates: start: 20200622

REACTIONS (15)
  - Anger [None]
  - Anxiety [None]
  - Behaviour disorder [None]
  - Sleep terror [None]
  - Psychomotor hyperactivity [None]
  - Affect lability [None]
  - Irritability [None]
  - Adverse drug reaction [None]
  - Muscle spasms [None]
  - Tremor [None]
  - Insomnia [None]
  - Diarrhoea [None]
  - Logorrhoea [None]
  - Agitation [None]
  - Hyperhidrosis [None]

NARRATIVE: CASE EVENT DATE: 20200624
